FAERS Safety Report 10212944 (Version 2)
Quarter: 2014Q3

REPORT INFORMATION
  Report Type: Spontaneous
  Country: US (occurrence: US)
  Receive Date: 20140602
  Receipt Date: 20140804
  Transmission Date: 20150326
  Serious: Yes (Other)
  Sender: FDA-Public Use
  Company Number: PHEH2014US010893

PATIENT
  Sex: Female

DRUGS (9)
  1. ZANTAC [Concomitant]
     Active Substance: RANITIDINE HYDROCHLORIDE
     Dosage: UNK UKN, BID
     Route: 048
  2. RECLAST [Suspect]
     Active Substance: ZOLEDRONIC ACID
     Indication: OSTEOPOROSIS
     Dosage: 5 MG, YEARLY
     Route: 042
     Dates: start: 20140514
  3. CYMBALTA [Concomitant]
     Active Substance: DULOXETINE HYDROCHLORIDE
     Dosage: 3 DF, DAILY
     Route: 048
  4. WELBUTRIN XL [Concomitant]
     Dosage: 1 DF, DAILY
     Route: 048
  5. LAMICTAL [Concomitant]
     Active Substance: LAMOTRIGINE
     Dosage: 2 DF, AT BEDTIME
     Route: 048
  6. VITAMIN D3 [Concomitant]
     Active Substance: CHOLECALCIFEROL
     Dosage: UNK UKN, UNK
  7. REFRESH [Concomitant]
     Active Substance: UNSPECIFIED INGREDIENT
     Dosage: UNK UKN, UNK
  8. CLONAPIN [Concomitant]
     Dosage: 1 DF, DAILY
     Route: 048
  9. DIGESTIVE ADVANTAGE [Concomitant]
     Dosage: UNK UKN, UNK

REACTIONS (17)
  - Headache [Unknown]
  - Arthralgia [Unknown]
  - Vision blurred [Unknown]
  - Myalgia [Unknown]
  - Nausea [Unknown]
  - Loss of consciousness [Unknown]
  - Migraine [Unknown]
  - Paraesthesia oral [Unknown]
  - Visual impairment [Unknown]
  - Dysphagia [Unknown]
  - Somnolence [Unknown]
  - Influenza like illness [Unknown]
  - Pain [Unknown]
  - Metamorphopsia [Unknown]
  - Coordination abnormal [Unknown]
  - Tremor [Unknown]
  - Asthenia [Unknown]
